FAERS Safety Report 9888356 (Version 1)
Quarter: 2014Q1

REPORT INFORMATION
  Report Type: Spontaneous
  Country: ES (occurrence: ES)
  Receive Date: 20140211
  Receipt Date: 20140211
  Transmission Date: 20141002
  Serious: Yes (Hospitalization, Other)
  Sender: FDA-Public Use
  Company Number: ES-ACTAVIS-2014-02148

PATIENT
  Age: 66 Year
  Sex: Male

DRUGS (3)
  1. OXALIPLATIN (UNKNOWN) [Suspect]
     Indication: RECTOSIGMOID CANCER METASTATIC
     Dosage: 85 MG/M2,  CYCLES OF 14 DAYS EACH
     Route: 065
  2. 5-FLUOROURACIL /00098801/ [Suspect]
     Indication: RECTOSIGMOID CANCER METASTATIC
     Dosage: 60 MG/M2, CYCLES OF 14 DAYS
     Route: 042
  3. FOLINIC ACID [Concomitant]
     Indication: CHEMOTHERAPY
     Dosage: 200 MG/M2, CYCLES OF 14 DAYS EACH
     Route: 065

REACTIONS (2)
  - Renal failure acute [Recovered/Resolved]
  - Bone marrow toxicity [Unknown]
